FAERS Safety Report 7828310-6 (Version None)
Quarter: 2011Q4

REPORT INFORMATION
  Report Type: 
  Country: None (occurrence: None)
  Receive Date: 20111020
  Receipt Date: 20111018
  Transmission Date: 20120403
  Serious: No
  Sender: FDA-Public Use
  Company Number: US-B.I. PHARMACEUTICALS,INC./RIDGEFIELD-2011-BP-24483BP

PATIENT
  Sex: Male

DRUGS (3)
  1. METFORMIN HCL [Concomitant]
  2. BETA BLOCKER [Concomitant]
  3. TRADJENTA [Suspect]

REACTIONS (2)
  - BLOOD PRESSURE INCREASED [None]
  - HEART RATE INCREASED [None]
